FAERS Safety Report 21817286 (Version 1)
Quarter: 2023Q1

REPORT INFORMATION
  Report Type: Spontaneous
  Country: GB (occurrence: GB)
  Receive Date: 20230104
  Receipt Date: 20230104
  Transmission Date: 20230418
  Serious: Yes (Hospitalization, Other)
  Sender: FDA-Public Use
  Company Number: GB-MLMSERVICE-20221222-3991922-1

PATIENT
  Age: 69 Year
  Sex: Female

DRUGS (9)
  1. ACETAMINOPHEN [Suspect]
     Active Substance: ACETAMINOPHEN
     Indication: Pain
     Route: 065
  2. INSULIN NOS [Concomitant]
     Active Substance: INSULIN NOS
  3. FEXOFENADINE [Concomitant]
     Active Substance: FEXOFENADINE HYDROCHLORIDE
  4. FLUVASTATIN [Concomitant]
     Active Substance: FLUVASTATIN SODIUM
  5. METFORMIN [Concomitant]
     Active Substance: METFORMIN HYDROCHLORIDE
  6. CODEINE [Suspect]
     Active Substance: CODEINE
     Indication: Procedural pain
  7. LANSOPRAZOLE [Suspect]
     Active Substance: LANSOPRAZOLE
     Indication: Gastrooesophageal reflux disease
  8. EZETIMIBE [Concomitant]
     Active Substance: EZETIMIBE
  9. SAXAGLIPTIN [Concomitant]
     Active Substance: SAXAGLIPTIN

REACTIONS (1)
  - Inappropriate antidiuretic hormone secretion [Recovered/Resolved]
